FAERS Safety Report 19685312 (Version 4)
Quarter: 2021Q3

REPORT INFORMATION
  Report Type: Spontaneous
  Country: US (occurrence: US)
  Receive Date: 20210811
  Receipt Date: 20210921
  Transmission Date: 20211014
  Serious: Yes (Hospitalization, Other)
  Sender: FDA-Public Use
  Company Number: US-PFIZER INC-202100975571

PATIENT
  Age: 81 Year
  Sex: Male
  Weight: 75.28 kg

DRUGS (19)
  1. FASLODEX [Suspect]
     Active Substance: FULVESTRANT
     Indication: BREAST CANCER FEMALE
     Dosage: UNK
     Dates: start: 20120101
  2. MIDODRINE [Concomitant]
     Active Substance: MIDODRINE
     Dosage: 10 MG, 1X/DAY (WAKE UP (ABOUT 5AM))
  3. LOPRESSOR [Concomitant]
     Active Substance: METOPROLOL TARTRATE
     Dosage: 25 MG (BREAKFAST)
  4. NORTHERA [Concomitant]
     Active Substance: DROXIDOPA
     Dosage: 200 MG, 3X/DAY (TOTAL: 600 MG) (WAKE UP (ABOUT 5AM))
  5. NORTHERA [Concomitant]
     Active Substance: DROXIDOPA
     Dosage: 200 MG, 3X/DAY (TOTAL: 600 MG) (DINNER)
  6. MIDODRINE [Concomitant]
     Active Substance: MIDODRINE
     Dosage: 10 MG, 1X/DAY (LUNCH: 13:00)
  7. FASLODEX [Suspect]
     Active Substance: FULVESTRANT
     Dosage: 500 MG
     Dates: start: 2013
  8. CALCIUM + VITAMIN D [CALCIUM CARBONATE;COLECALCIFEROL] [Concomitant]
     Active Substance: CALCIUM CARBONATE\CHOLECALCIFEROL
     Dosage: UNK, 1/2 TABLET (DINNER)
  9. IBRANCE [Suspect]
     Active Substance: PALBOCICLIB
     Dosage: 125 MG, 1X/DAY
     Dates: start: 2013
  10. NORTHERA [Concomitant]
     Active Substance: DROXIDOPA
     Dosage: 200 MG, 3X/DAY (TOTAL: 600 MG) (LUNCH)
  11. ELIQUIS [Concomitant]
     Active Substance: APIXABAN
     Dosage: 5 MG, 1X/DAY (DINNER)
  12. BUMEX [Concomitant]
     Active Substance: BUMETANIDE
     Dosage: 0.5 MG, 1X/DAY (WAKE UP (ABOUT 5AM))
  13. POTASSIUM CHLORIDE. [Concomitant]
     Active Substance: POTASSIUM CHLORIDE
     Dosage: 20 MEQ SA (BREAKFAST)
  14. IBRANCE [Suspect]
     Active Substance: PALBOCICLIB
     Indication: BREAST CANCER FEMALE
     Dosage: 125 MG
     Dates: start: 20120101
  15. ELIQUIS [Concomitant]
     Active Substance: APIXABAN
     Dosage: 5 MG, 1X/DAY (WAKE UP (ABOUT 5AM))
  16. CALCIUM + VITAMIN D [CALCIUM CARBONATE;COLECALCIFEROL] [Concomitant]
     Active Substance: CALCIUM CARBONATE\CHOLECALCIFEROL
     Dosage: UNK, 1/2 TABLET (BREAKFAST)
  17. LOPRESSOR [Concomitant]
     Active Substance: METOPROLOL TARTRATE
     Dosage: 25 MG (DINNER)
  18. MIDODRINE [Concomitant]
     Active Substance: MIDODRINE
     Dosage: 10 MG, 1X/DAY (BEDTIME 21:00)
  19. LANOXIN [Concomitant]
     Active Substance: DIGOXIN
     Dosage: 0.125 MG (IF HEART RATE IS ABOVE 60) (BREAKFAST)

REACTIONS (9)
  - Pulmonary oedema [Recovered/Resolved]
  - Cardiac arrest [Unknown]
  - Autonomic nervous system imbalance [Unknown]
  - Loss of consciousness [Not Recovered/Not Resolved]
  - Cardiac failure congestive [Unknown]
  - Hypotension [Not Recovered/Not Resolved]
  - Cardiac failure [Not Recovered/Not Resolved]
  - Atrial fibrillation [Unknown]
  - Neoplasm progression [Not Recovered/Not Resolved]

NARRATIVE: CASE EVENT DATE: 2013
